FAERS Safety Report 7059792 (Version 3)
Quarter: 2012Q4

REPORT INFORMATION
  Report Type: 
  Country: US (occurrence: US)
  Receive Date: 20060505
  Receipt Date: 20121019
  Transmission Date: 20130627
  Serious: Yes (Other)
  Sender: FDA-Public Use
  Company Number: US-PFIZER INC-2006057360

PATIENT
  Age: 60 Year
  Sex: Female
  Weight: 93 kg

DRUGS (14)
  1. PROVERA [Suspect]
     Indication: HORMONE REPLACEMENT THERAPY
     Dosage: UNK
     Route: 048
     Dates: start: 1996, end: 200210
  2. PREMARIN [Suspect]
     Indication: HORMONE REPLACEMENT THERAPY
     Dosage: UNK
     Route: 048
     Dates: start: 1996, end: 2000
  3. PREMPRO [Suspect]
     Indication: HORMONE REPLACEMENT THERAPY
     Dosage: UNK
     Route: 048
     Dates: start: 200010, end: 200205
  4. MEDROXYPROGESTERONE ACETATE [Suspect]
     Indication: HORMONE REPLACEMENT THERAPY
     Dosage: UNK
     Route: 048
     Dates: start: 1996, end: 200210
  5. MEDROXYPROGESTERONE ACETATE [Suspect]
     Indication: HORMONE REPLACEMENT THERAPY
     Dosage: UNK
     Dates: start: 1996, end: 200101
  6. FEMHRT [Suspect]
     Indication: HORMONE REPLACEMENT THERAPY
     Dosage: UNK
     Dates: start: 2002
  7. CYCRIN [Suspect]
     Indication: HORMONE REPLACEMENT THERAPY
     Dosage: UNK
  8. IBUPROFEN [Concomitant]
     Indication: ARTHRITIS
     Dosage: 800 mg, 2x/day
     Dates: start: 2000, end: 2003
  9. IBUPROFEN [Concomitant]
     Indication: PAIN
  10. SYNTHROID [Concomitant]
     Indication: THYROID DISORDER
     Dosage: 0.175 mg, 1x/day
     Dates: start: 2000
  11. KLOR-CON [Concomitant]
     Indication: BLOOD POTASSIUM
     Dosage: UNK
     Dates: start: 2000
  12. CLONIDINE [Concomitant]
     Indication: BLOOD PRESSURE
     Dosage: 0.1 mg, 3x/day
     Dates: start: 2000
  13. APAP [Concomitant]
     Indication: PAIN
     Dosage: UNK
     Dates: start: 2000, end: 2004
  14. VIOXX [Concomitant]
     Indication: ARTHRITIS
     Dosage: UNK
     Dates: start: 2001, end: 2004

REACTIONS (1)
  - Breast cancer female [Unknown]
